FAERS Safety Report 5129668-1 (Version None)
Quarter: 2006Q4

REPORT INFORMATION
  Report Type: 
  Country: None (occurrence: None)
  Receive Date: 20061018
  Receipt Date: 20061016
  Transmission Date: 20070319
  Serious: Yes (Hospitalization)
  Sender: FDA-Public Use
  Company Number: US-GLAXOSMITHKLINE-A0623718A

PATIENT
  Age: 49 Year
  Sex: Male

DRUGS (4)
  1. LOTRONEX [Suspect]
     Indication: IRRITABLE BOWEL SYNDROME
     Dosage: 1MG TWICE PER DAY
     Route: 048
     Dates: start: 20040101
  2. TEGRETOL [Concomitant]
  3. EFFEXOR [Concomitant]
  4. LOPRESSOR [Concomitant]

REACTIONS (1)
  - PANCREATITIS [None]
